FAERS Safety Report 23907626 (Version 2)
Quarter: 2024Q2

REPORT INFORMATION
  Report Type: Spontaneous
  Country: US (occurrence: US)
  Receive Date: 20240528
  Receipt Date: 20240529
  Transmission Date: 20240715
  Serious: Yes (Hospitalization)
  Sender: FDA-Public Use
  Company Number: US-BRISTOL-MYERS SQUIBB COMPANY-2024-081659

PATIENT
  Age: 77 Year
  Sex: Male

DRUGS (30)
  1. REVLIMID [Suspect]
     Active Substance: LENALIDOMIDE
     Indication: Plasma cell myeloma
     Dosage: TAKE 1 CAPSULE BY MOUTH DAILY FOR 21 DAYS THEN 7 DAYS OFF
     Route: 048
     Dates: start: 202201
  2. REVLIMID [Suspect]
     Active Substance: LENALIDOMIDE
     Dosage: TAKE 1 CAPSULE BY MOUTH DAILY FOR 14 DAYS THEN 7 DAYS OFF
     Route: 048
  3. ELIQUIS [Concomitant]
     Active Substance: APIXABAN
  4. ACYCLOVIR [Concomitant]
     Active Substance: ACYCLOVIR
     Dosage: TAKE 1 TABLET BY MOUTH TWICE DAILY
     Route: 048
  5. DEXAMETHASONE [Concomitant]
     Active Substance: DEXAMETHASONE
     Dosage: TAKE 10 TABLET BY MOUTH EVERY 3 WEEKS ON THE DAY OF INJECTION AS DIRECTED
     Route: 048
  6. DICLOFENAC [Concomitant]
     Active Substance: DICLOFENAC
     Dosage: DICLOFENAC 1% GEL 100 GM-APPLY 2 GRAMS TO THE AFFECTED AREA OF SKIN ON BOTH KNEES TWICE DAILY
  7. DICYCLOMINE [Concomitant]
     Active Substance: DICYCLOMINE HYDROCHLORIDE
     Indication: Abdominal pain
     Dosage: TAKE 1 TO 2 TABLET BY MOUTH EVERY 6 HOURS AS NEEDED FOR ABDOMINAL CRAMPS
     Route: 048
  8. DICYCLOMINE [Concomitant]
     Active Substance: DICYCLOMINE HYDROCHLORIDE
  9. GABAPENTIN [Concomitant]
     Active Substance: GABAPENTIN
     Indication: Neuralgia
     Dosage: TAKE 2 CAPSULE BY MOUTH EVERY 8 HOURS FOR NERVE PAIN
     Route: 048
  10. GABAPENTIN [Concomitant]
     Active Substance: GABAPENTIN
  11. OXYCODONE [Concomitant]
     Active Substance: OXYCODONE\OXYCODONE HYDROCHLORIDE
     Indication: Pain
     Dosage: TAKE 1 TABLET BY MOUTH EVERY 4 TO 6 HOURS AS NEEDED FOR PAIN
     Route: 048
  12. OXYCODONE [Concomitant]
     Active Substance: OXYCODONE\OXYCODONE HYDROCHLORIDE
     Dosage: IMMEDIATE RELEASE
  13. OXYCODONE AND ACETAMINOPHEN [Concomitant]
     Active Substance: ACETAMINOPHEN\OXYCODONE HYDROCHLORIDE
     Indication: Pain
     Dosage: TAKE 1 TABLET (5-125 MG) BY MOUTH TWICE DAILY AS NEEDED FOR PAIN
     Route: 048
  14. OXYCODONE AND ACETAMINOPHEN [Concomitant]
     Active Substance: ACETAMINOPHEN\OXYCODONE HYDROCHLORIDE
     Dosage: TAKE 1 TABLET (5-125 MG) BY MOUTH EVERY 8 HOURS AS NEEDED FOR PAIN
     Route: 048
  15. OXYCODONE AND ACETAMINOPHEN [Concomitant]
     Active Substance: ACETAMINOPHEN\OXYCODONE HYDROCHLORIDE
     Dosage: TAKE 1 TABLET (5-125 MG) BY MOUTH EVERY 4 HOURS AS NEEDED FOR PAIN
     Route: 048
  16. OXYCODONE AND ACETAMINOPHEN [Concomitant]
     Active Substance: ACETAMINOPHEN\OXYCODONE HYDROCHLORIDE
     Dosage: TAKE 1 TABLET (5-125 MG) BY MOUTH EVERY 12 HOURS AS NEEDED FOR PAIN
     Route: 048
  17. PREDNISONE [Concomitant]
     Active Substance: PREDNISONE
     Dosage: TAKE 4 TABLETS BY MOUTH FOR 2 DAYS, THEN 3 TABLETS BY MOUTH FOR 2 DAYS, 2 TABLETS FOR 2 DAYS, 1 TABL
     Route: 048
  18. SENNA [Concomitant]
     Active Substance: SENNA LEAF\SENNOSIDES\SENNOSIDES A AND B
     Indication: Constipation
     Dosage: TAKE 2 TABLETS MY MOUTH NOW, THEN TAKE 1 TABLET EVERY 12 HOURS AS NEEDED FOR CONSTIPATION, HOLD FOR
     Route: 048
  19. STOOL SOFTENER (DOCUSATE) [Concomitant]
     Active Substance: DOCUSATE
     Dosage: TAKE 1 CAPSULE BY MOUTH TWICE DAILY. HOLD FOR LOOSE STOOLS
     Route: 048
  20. AMLODIPINE BESYLATE [Concomitant]
     Active Substance: AMLODIPINE BESYLATE
  21. ATORVASTATIN [Concomitant]
     Active Substance: ATORVASTATIN
  22. CARVEDILOL [Concomitant]
     Active Substance: CARVEDILOL
  23. DOXAZOSIN MESYLATE [Concomitant]
     Active Substance: DOXAZOSIN MESYLATE
  24. HYDRALAZINE [Concomitant]
     Active Substance: HYDRALAZINE HYDROCHLORIDE
     Dosage: (ORANGE)
  25. LOSARTAN [Concomitant]
     Active Substance: LOSARTAN
  26. LOSARTAN POTASSIUM [Concomitant]
     Active Substance: LOSARTAN POTASSIUM
  27. POTASSIUM CHLORIDE [Concomitant]
     Active Substance: POTASSIUM CHLORIDE
     Dosage: ER
  28. TAMSULOSIN [Concomitant]
     Active Substance: TAMSULOSIN
  29. TERAZOSIN [Concomitant]
     Active Substance: TERAZOSIN HYDROCHLORIDE
  30. VENLAFAXINE [Concomitant]
     Active Substance: VENLAFAXINE HYDROCHLORIDE
     Dosage: ER

REACTIONS (3)
  - Gastrointestinal disorder [Unknown]
  - Oedema peripheral [Recovering/Resolving]
  - Off label use [Unknown]

NARRATIVE: CASE EVENT DATE: 20240501
